FAERS Safety Report 4921568-2 (Version None)
Quarter: 2006Q1

REPORT INFORMATION
  Report Type: 
  Country: None (occurrence: None)
  Receive Date: 20060224
  Receipt Date: 20060213
  Transmission Date: 20060701
  Serious: Yes (Other)
  Sender: FDA-Public Use
  Company Number: PHRM2006FR00833

PATIENT
  Age: 96 Year
  Sex: Female

DRUGS (11)
  1. EXELON [Suspect]
     Indication: DEMENTIA ALZHEIMER'S TYPE
     Dosage: 4.5 MG, BID
     Route: 048
     Dates: start: 20060125, end: 20060213
  2. EXELON [Suspect]
     Dosage: 3 MG, BID
     Route: 048
     Dates: start: 20060214
  3. ASASANTIN - SLOW RELEASE [Concomitant]
     Route: 048
  4. IMPORTAL [Concomitant]
     Route: 048
  5. DUSPATALIN ^SOLVAY^ [Concomitant]
     Route: 048
  6. MAG 2 [Concomitant]
     Route: 048
  7. SEROPRAM [Concomitant]
     Route: 048
  8. ESOMEPRAZOLE [Concomitant]
     Route: 048
  9. LASILIX [Concomitant]
     Route: 048
  10. KALEORID [Concomitant]
     Route: 048
  11. HYPERIUM [Concomitant]
     Route: 048

REACTIONS (5)
  - FALL [None]
  - MOUTH HAEMORRHAGE [None]
  - PYREXIA [None]
  - URINARY TRACT INFECTION [None]
  - VOMITING [None]
